FAERS Safety Report 17354101 (Version 1)
Quarter: 2020Q1

REPORT INFORMATION
  Report Type: Spontaneous
  Country: SE (occurrence: SE)
  Receive Date: 20200131
  Receipt Date: 20200131
  Transmission Date: 20200409
  Serious: Yes (Hospitalization)
  Sender: FDA-Public Use
  Company Number: SE-MYLANLABS-2020M1010634

PATIENT
  Age: 26 Year

DRUGS (3)
  1. ESCITALOPRAM [Suspect]
     Active Substance: ESCITALOPRAM OXALATE
     Indication: PRODUCT USED FOR UNKNOWN INDICATION
     Dosage: OK?ND DOS
     Route: 048
     Dates: start: 20181115, end: 20181115
  2. LYRICA [Suspect]
     Active Substance: PREGABALIN
     Indication: PRODUCT USED FOR UNKNOWN INDICATION
     Dosage: OK?ND DOS
     Route: 048
     Dates: start: 20181115, end: 20181115
  3. LERGIGAN (PROMETHAZINE) [Suspect]
     Active Substance: PROMETHAZINE HYDROCHLORIDE
     Indication: PRODUCT USED FOR UNKNOWN INDICATION
     Dosage: OK?ND DOS
     Route: 048
     Dates: start: 20181115, end: 20181115

REACTIONS (6)
  - Intentional overdose [Unknown]
  - Muscle twitching [Unknown]
  - Intentional self-injury [Unknown]
  - Mydriasis [Unknown]
  - Myoclonus [Unknown]
  - Urinary retention [Unknown]

NARRATIVE: CASE EVENT DATE: 20181115
